FAERS Safety Report 7956094-X (Version None)
Quarter: 2011Q4

REPORT INFORMATION
  Report Type: 
  Country: None (occurrence: None)
  Receive Date: 20111205
  Receipt Date: 20111122
  Transmission Date: 20120403
  Serious: Yes (Hospitalization)
  Sender: FDA-Public Use
  Company Number: CA-JNJFOC-20111110902

PATIENT
  Sex: Female
  Weight: 65.5 kg

DRUGS (3)
  1. HYDROCORTISONE [Concomitant]
     Route: 065
  2. PREDNISONE TAB [Concomitant]
     Route: 065
  3. REMICADE [Suspect]
     Indication: CROHN'S DISEASE
     Route: 042
     Dates: start: 20111013

REACTIONS (2)
  - INTESTINAL STENOSIS [None]
  - CROHN'S DISEASE [None]
